FAERS Safety Report 8045180-4 (Version None)
Quarter: 2012Q1

REPORT INFORMATION
  Report Type: 
  Country: None (occurrence: None)
  Receive Date: 20120113
  Receipt Date: 20111201
  Transmission Date: 20120608
  Serious: Yes (Hospitalization)
  Sender: FDA-Public Use
  Company Number: CA-ASTRAZENECA-2011SE73541

PATIENT
  Age: 30 Year
  Sex: Male

DRUGS (2)
  1. CELEXA [Concomitant]
  2. SEROQUEL XR [Suspect]
     Route: 048
     Dates: start: 20110701, end: 20111115

REACTIONS (1)
  - PANCREATITIS [None]
